FAERS Safety Report 21226210 (Version 2)
Quarter: 2022Q4

REPORT INFORMATION
  Report Type: Report from Study
  Country: BR (occurrence: BR)
  Receive Date: 20220818
  Receipt Date: 20221109
  Transmission Date: 20230113
  Serious: Yes (Other)
  Sender: FDA-Public Use
  Company Number: BR-JNJFOC-20220826149

PATIENT
  Age: 67 Year
  Sex: Female
  Weight: 55 kg

DRUGS (5)
  1. SIMPONI [Suspect]
     Active Substance: GOLIMUMAB
     Indication: Rheumatoid arthritis
     Dosage: 4 VIALS
     Route: 058
     Dates: start: 20150407
  2. SIMPONI [Suspect]
     Active Substance: GOLIMUMAB
     Dosage: 4 VIALS
     Route: 058
  3. VALSARTAN [Concomitant]
     Active Substance: VALSARTAN
     Indication: Hypertension
  4. METHOTREXATE [Concomitant]
     Active Substance: METHOTREXATE
     Indication: Rheumatoid arthritis
  5. COVID-19 VACCINE [Concomitant]

REACTIONS (6)
  - Rheumatoid arthritis [Recovered/Resolved]
  - Memory impairment [Unknown]
  - Breast mass [Unknown]
  - COVID-19 [Recovered/Resolved]
  - Off label use [Unknown]
  - Synovial cyst [Unknown]

NARRATIVE: CASE EVENT DATE: 20220101
